FAERS Safety Report 22202266 (Version 1)
Quarter: 2023Q2

REPORT INFORMATION
  Report Type: Report from Study
  Country: CR (occurrence: CR)
  Receive Date: 20230412
  Receipt Date: 20230412
  Transmission Date: 20230721
  Serious: Yes (Other)
  Sender: FDA-Public Use
  Company Number: CR-AstraZeneca-2023A077372

PATIENT
  Sex: Female

DRUGS (1)
  1. METOPROLOL SUCCINATE [Suspect]
     Active Substance: METOPROLOL SUCCINATE
     Indication: Arrhythmia
     Route: 048
     Dates: start: 202209

REACTIONS (5)
  - Arrhythmia [Recovering/Resolving]
  - Exercise tolerance decreased [Unknown]
  - Illness [Unknown]
  - Palpitations [Unknown]
  - Off label use [Unknown]
